FAERS Safety Report 18312994 (Version 1)
Quarter: 2020Q3

REPORT INFORMATION
  Report Type: Spontaneous
  Country: US (occurrence: US)
  Receive Date: 20200925
  Receipt Date: 20200925
  Transmission Date: 20201103
  Serious: No
  Sender: FDA-Public Use
  Company Number: US-VERTEX PHARMACEUTICALS-2020-018890

PATIENT
  Sex: Female
  Weight: 42 kg

DRUGS (9)
  1. TRIKAFTA [Suspect]
     Active Substance: ELEXACAFTOR\IVACAFTOR\TEZACAFTOR
     Indication: CYSTIC FIBROSIS
     Dosage: 2 TABLETS (100MG ELEXACAFTOR/ 50MG TEZACAFTOR/ 75MG IVACAFTOR) AM, 1 TABLET (150MG IVACAFTOR) PM
     Route: 048
  2. DOCUSATE SODIUM. [Concomitant]
     Active Substance: DOCUSATE SODIUM
  3. VITAMIN K [PHYTOMENADIONE] [Concomitant]
  4. XOPENEX [Concomitant]
     Active Substance: LEVALBUTEROL HYDROCHLORIDE
  5. PULMOZYME [Concomitant]
     Active Substance: DORNASE ALFA
  6. URSODIOL. [Concomitant]
     Active Substance: URSODIOL
  7. PREVACID [Concomitant]
     Active Substance: LANSOPRAZOLE
  8. FLOVENT [Concomitant]
     Active Substance: FLUTICASONE PROPIONATE
  9. CREON [Concomitant]
     Active Substance: PANCRELIPASE AMYLASE\PANCRELIPASE LIPASE\PANCRELIPASE PROTEASE

REACTIONS (1)
  - Emergency care [Unknown]
